FAERS Safety Report 25772077 (Version 1)
Quarter: 2025Q3

REPORT INFORMATION
  Report Type: Spontaneous
  Country: EU (occurrence: EU)
  Receive Date: 20250908
  Receipt Date: 20250908
  Transmission Date: 20251021
  Serious: Yes (Life-Threatening, Hospitalization, Other)
  Sender: ALKEM
  Company Number: EU-ALKEM LABORATORIES LIMITED-IR-ALKEM-2025-08691

PATIENT
  Age: 48 Year
  Sex: Male
  Weight: 98 kg

DRUGS (6)
  1. COLCHICINE [Suspect]
     Active Substance: COLCHICINE
     Indication: Gout
     Route: 065
  2. COLCHICINE [Suspect]
     Active Substance: COLCHICINE
     Indication: Polyarthritis
     Route: 065
  3. IBUPROFEN [Suspect]
     Active Substance: IBUPROFEN
     Indication: Product used for unknown indication
     Route: 065
  4. ACETAMINOPHEN [Suspect]
     Active Substance: ACETAMINOPHEN
     Indication: Product used for unknown indication
     Route: 065
  5. KETOPROFEN [Suspect]
     Active Substance: KETOPROFEN
     Indication: Product used for unknown indication
     Route: 065
  6. ALLOPURINOL [Concomitant]
     Active Substance: ALLOPURINOL
     Indication: Polyarthritis
     Dosage: 200 MILLIGRAM, QD
     Route: 065

REACTIONS (18)
  - Suicide attempt [Unknown]
  - Neurological decompensation [Unknown]
  - Respiratory failure [Unknown]
  - Hepatic failure [Unknown]
  - Renal failure [Unknown]
  - Oliguria [Unknown]
  - Blood creatinine increased [Unknown]
  - Metabolic acidosis [Unknown]
  - Renal injury [Unknown]
  - Anaemia [Unknown]
  - Thrombocytopenia [Unknown]
  - Leukopenia [Unknown]
  - Diarrhoea [Unknown]
  - Vomiting [Unknown]
  - Alopecia [Unknown]
  - Multiple organ dysfunction syndrome [Unknown]
  - Overdose [Unknown]
  - Toxicity to various agents [Unknown]
